FAERS Safety Report 26140122 (Version 1)
Quarter: 2025Q4

REPORT INFORMATION
  Report Type: Spontaneous
  Country: US (occurrence: None)
  Receive Date: 20251210
  Receipt Date: 20251210
  Transmission Date: 20260117
  Serious: Yes (Hospitalization)
  Sender: FDA-CTU
  Company Number: None

PATIENT
  Age: 41 Year
  Sex: Male
  Weight: 90 kg

DRUGS (2)
  1. SEMAGLUTIDE [Suspect]
     Active Substance: SEMAGLUTIDE
     Indication: Diabetes mellitus
     Dosage: FREQUENCY : WEEKLY;
     Route: 058
     Dates: start: 20250616, end: 20250703
  2. CANNABIS SATIVA SUBSP. INDICA TOP [Suspect]
     Active Substance: CANNABIS SATIVA SUBSP. INDICA TOP
     Indication: Diabetes mellitus

REACTIONS (5)
  - Small intestinal obstruction [None]
  - Gastrointestinal hypomotility [None]
  - Diabetes mellitus inadequate control [None]
  - Cyclic vomiting syndrome [None]
  - Substance use [None]

NARRATIVE: CASE EVENT DATE: 20250703
